FAERS Safety Report 8014909-3 (Version None)
Quarter: 2011Q4

REPORT INFORMATION
  Report Type: 
  Country: None (occurrence: None)
  Receive Date: 20111229
  Receipt Date: 20111222
  Transmission Date: 20120403
  Serious: Yes (Death, Other)
  Sender: FDA-Public Use
  Company Number: US-ABBOTT-11P-163-0878038-00

PATIENT
  Sex: Male
  Weight: 54.48 kg

DRUGS (15)
  1. NEXIUM [Concomitant]
     Indication: GASTROOESOPHAGEAL REFLUX DISEASE
     Dates: end: 20111101
  2. ASPIRIN [Concomitant]
     Indication: PRODUCT USED FOR UNKNOWN INDICATION
     Dates: end: 20111101
  3. LORAZEPAM [Concomitant]
     Indication: NERVOUSNESS
     Dates: end: 20111101
  4. METHYLSULFONYLMETHANE [Concomitant]
     Indication: ARTHRITIS
     Dates: end: 20111101
  5. RED YEAST RICE [Concomitant]
     Indication: BLOOD CHOLESTEROL INCREASED
     Dates: end: 20111101
  6. VITAMIN C ASCORBATE [Concomitant]
     Indication: VITAMIN SUPPLEMENTATION
     Dates: end: 20111101
  7. LEXAPRO [Concomitant]
     Indication: DEPRESSION
     Dates: end: 20111101
  8. TYLENOL PM [Concomitant]
     Indication: SLEEP DISORDER THERAPY
     Dates: end: 20111101
  9. HUMIRA [Suspect]
     Indication: RHEUMATOID ARTHRITIS
     Dates: start: 20050125, end: 20111112
  10. CYTOTEC [Concomitant]
     Indication: PRODUCT USED FOR UNKNOWN INDICATION
     Dates: end: 20111101
  11. FENOPROFEN CALCIUM [Concomitant]
     Indication: RHEUMATOID ARTHRITIS
     Dates: end: 20111101
  12. OPCON [Concomitant]
     Indication: DRY EYE
     Dosage: EYE DROPS
     Dates: end: 20111101
  13. PERCOCET [Concomitant]
     Indication: PAIN
  14. GLUCOSAMINE [Concomitant]
     Indication: RHEUMATOID ARTHRITIS
     Dates: end: 20111101
  15. VITAMIN D [Concomitant]
     Indication: VITAMIN SUPPLEMENTATION
     Dates: end: 20111101

REACTIONS (10)
  - EAR OPERATION [None]
  - RESPIRATORY ARREST [None]
  - FALL [None]
  - INGUINAL HERNIA [None]
  - MYOCARDIAL INFARCTION [None]
  - FOOT OPERATION [None]
  - DEATH [None]
  - UPPER LIMB FRACTURE [None]
  - HIP ARTHROPLASTY [None]
  - COLON OPERATION [None]
